FAERS Safety Report 7005057-X (Version None)
Quarter: 2010Q3

REPORT INFORMATION
  Report Type: 
  Country: None (occurrence: None)
  Receive Date: 20100921
  Receipt Date: 20100908
  Transmission Date: 20110219
  Serious: Yes (Hospitalization)
  Sender: FDA-Public Use
  Company Number: PHHY2010FR60641

PATIENT
  Age: 85 Year
  Sex: Male

DRUGS (9)
  1. AREDIA [Suspect]
     Indication: MULTIPLE MYELOMA
     Dosage: UNK
  2. ACTONEL [Suspect]
     Indication: MULTIPLE MYELOMA
     Dosage: 35 MG, QW
     Dates: start: 20090101, end: 20100801
  3. BONIVA [Suspect]
     Indication: MULTIPLE MYELOMA
     Dosage: UNK
  4. CELECTOL [Concomitant]
     Dosage: 200 MG, UNK
  5. DIFFU K [Concomitant]
     Dosage: UNK
  6. OMEPRAZOLE [Concomitant]
     Dosage: UNK
  7. DUPHALAC [Concomitant]
     Dosage: UNK
  8. TAMSULOSIN HCL [Concomitant]
     Dosage: UNK
  9. GLUCOPHAGE [Concomitant]
     Dosage: UNK

REACTIONS (8)
  - APICAL GRANULOMA [None]
  - DYSPNOEA [None]
  - LUNG DISORDER [None]
  - OSTEITIS [None]
  - OSTEOMYELITIS [None]
  - OSTEONECROSIS OF JAW [None]
  - PAIN IN JAW [None]
  - SWELLING [None]
